FAERS Safety Report 16614575 (Version 1)
Quarter: 2019Q3

REPORT INFORMATION
  Report Type: Spontaneous
  Country: US (occurrence: US)
  Receive Date: 20190723
  Receipt Date: 20190723
  Transmission Date: 20191004
  Serious: No
  Sender: FDA-Public Use
  Company Number: US-PFIZER INC-2019309842

PATIENT
  Age: 61 Year
  Sex: Female
  Weight: 58.97 kg

DRUGS (1)
  1. IBRANCE [Suspect]
     Active Substance: PALBOCICLIB
     Indication: NEOPLASM MALIGNANT
     Dosage: 125 MG, CYCLIC (ONCE A DAY FOR 21 DAYS)
     Dates: start: 201902

REACTIONS (3)
  - Product use in unapproved indication [Unknown]
  - Neoplasm progression [Unknown]
  - Off label use [Unknown]
